FAERS Safety Report 4761430-1 (Version None)
Quarter: 2005Q3

REPORT INFORMATION
  Report Type: 
  Country: None (occurrence: None)
  Receive Date: 20050901
  Receipt Date: 20041111
  Transmission Date: 20060218
  Serious: Yes (Other)
  Sender: FDA-Public Use
  Company Number: 15237

PATIENT
  Age: 51 Year
  Sex: Female
  Weight: 122.0176 kg

DRUGS (8)
  1. PACLITAXEL [Suspect]
     Indication: BREAST CANCER
     Dosage: 350 MG, IV
     Route: 042
     Dates: start: 20041001
  2. ALOXI [Concomitant]
  3. DECADRON [Concomitant]
  4. BENADRYL [Concomitant]
  5. PEPCID [Concomitant]
  6. PLETAL [Concomitant]
  7. TOPROL-XL [Concomitant]
  8. LIPITOR [Concomitant]

REACTIONS (2)
  - PALMAR-PLANTAR ERYTHRODYSAESTHESIA SYNDROME [None]
  - SKIN EXFOLIATION [None]
